FAERS Safety Report 4276714-3 (Version None)
Quarter: 2004Q1

REPORT INFORMATION
  Report Type: 
  Country: None (occurrence: None)
  Receive Date: 20040120
  Receipt Date: 20040108
  Transmission Date: 20041129
  Serious: Yes (Hospitalization)
  Sender: FDA-Public Use
  Company Number: FR-JNJFOC-20040101344

PATIENT
  Age: 68 Year
  Sex: Female

DRUGS (3)
  1. RISPERDAL [Suspect]
     Indication: SCHIZOAFFECTIVE DISORDER
     Dosage: 2 MG, IN 1 DAY, ORAL
     Route: 048
     Dates: start: 20030809, end: 20030902
  2. RAMIPRIL [Suspect]
     Indication: MYOCARDIAL INFARCTION
     Dosage: 2.5 MG, IN 1 DAY, ORAL
     Route: 048
     Dates: start: 20030724, end: 20030902
  3. SEROPRAM (CITALOPRAM HYDROBROMIDE) [Suspect]
     Indication: DEPRESSION
     Dosage: 20 MG, IN 1 DAY, ORAL
     Route: 048
     Dates: start: 20030724, end: 20030902

REACTIONS (7)
  - BONE MARROW DEPRESSION [None]
  - CHILLS [None]
  - DRUG INTERACTION [None]
  - GINGIVITIS [None]
  - HYPERTHERMIA [None]
  - HYPOTENSION [None]
  - OLIGURIA [None]
